FAERS Safety Report 9709375 (Version 3)
Quarter: 2014Q1

REPORT INFORMATION
  Report Type: Other
  Country: GB (occurrence: GB)
  Receive Date: 20131126
  Receipt Date: 20140113
  Transmission Date: 20141002
  Serious: Yes (Other)
  Sender: FDA-Public Use
  Company Number: GB-SUN PHARMACEUTICAL INDUSTRIES LTD-2013SUN05046

PATIENT
  Age: 66 Year
  Sex: Male

DRUGS (7)
  1. OXALIPLATIN 5 MG/ML, CONCENTRATE FOR SOLUTION FOR INFUSION [Suspect]
     Indication: COLORECTAL CANCER METASTATIC
     Dosage: UNK
     Route: 065
  2. BEVACIZUMAB [Suspect]
     Indication: COLORECTAL CANCER METASTATIC
     Dosage: 386 MG, UNK
     Route: 042
     Dates: start: 20130617, end: 20130724
  3. CALCIUM FOLINATE [Suspect]
     Indication: COLORECTAL CANCER METASTATIC
     Route: 065
  4. CAPECITABINE [Suspect]
     Indication: COLORECTAL CANCER METASTATIC
     Route: 042
  5. FLUOROURACIL [Suspect]
     Indication: COLORECTAL CANCER METASTATIC
     Route: 042
  6. FLUOROURACIL [Suspect]
     Dosage: INTRAVENOUS BOLUS
  7. IRINOTECAN [Suspect]
     Indication: COLORECTAL CANCER METASTATIC
     Route: 065

REACTIONS (1)
  - Wound complication [Recovered/Resolved]
